FAERS Safety Report 5576730-5 (Version None)
Quarter: 2007Q4

REPORT INFORMATION
  Report Type: 
  Country: None (occurrence: None)
  Receive Date: 20071228
  Receipt Date: 20071221
  Transmission Date: 20080405
  Serious: Yes (Other)
  Sender: FDA-Public Use
  Company Number: US-JNJFOC-20071105739

PATIENT
  Sex: Female
  Weight: 68.04 kg

DRUGS (7)
  1. IBUPROFEN [Suspect]
     Indication: INFLAMMATION
  2. IBUPROFEN [Suspect]
     Indication: ARTHRALGIA
     Dosage: 400-800 MG, 3-4 TIMES EVERY DAY AS NECESSARY
  3. UNSPECIFIED WATER PILL [Concomitant]
     Indication: FLUID RETENTION
  4. SUGAR PILLS [Concomitant]
  5. DARVOCET [Concomitant]
     Indication: PAIN
  6. VALIUM [Concomitant]
     Indication: SCIATICA
  7. KLOR-CON [Concomitant]
     Indication: BLOOD POTASSIUM

REACTIONS (3)
  - MALAISE [None]
  - PYREXIA [None]
  - RENAL DISORDER [None]
